FAERS Safety Report 8246488-X (Version None)
Quarter: 2012Q1

REPORT INFORMATION
  Report Type: 
  Country: None (occurrence: None)
  Receive Date: 20120330
  Receipt Date: 20120321
  Transmission Date: 20120608
  Serious: Yes (Disabling, Other)
  Sender: FDA-Public Use
  Company Number: CA-JNJFOC-20120310171

PATIENT
  Sex: Male
  Weight: 71 kg

DRUGS (6)
  1. VITAMIN D [Concomitant]
     Route: 065
  2. REMICADE [Suspect]
     Indication: ANKYLOSING SPONDYLITIS
     Route: 042
     Dates: start: 20080417, end: 20120221
  3. FOLIC ACID [Concomitant]
     Route: 048
     Dates: start: 20080304
  4. VITAMIN B-12 [Concomitant]
     Route: 065
  5. REMICADE [Suspect]
     Indication: CROHN'S DISEASE
     Route: 042
     Dates: start: 20080417, end: 20120221
  6. METHOTREXATE [Concomitant]
     Route: 058
     Dates: start: 20080207

REACTIONS (3)
  - GAIT DISTURBANCE [None]
  - NEUROPATHY PERIPHERAL [None]
  - DEMYELINATION [None]
